FAERS Safety Report 19001091 (Version 1)
Quarter: 2021Q1

REPORT INFORMATION
  Report Type: Spontaneous
  Country: CA (occurrence: CA)
  Receive Date: 20210312
  Receipt Date: 20210312
  Transmission Date: 20210420
  Serious: Yes (Life-Threatening, Hospitalization, Other)
  Sender: FDA-Public Use
  Company Number: CA-GRANULES-CA-2021GRALIT00178

PATIENT
  Age: 31 Year
  Sex: Female

DRUGS (5)
  1. INSULIN [Interacting]
     Active Substance: INSULIN NOS
     Indication: PRODUCT USED FOR UNKNOWN INDICATION
     Route: 065
  2. ACETYLCYSTEINE. [Interacting]
     Active Substance: ACETYLCYSTEINE
     Indication: OVERDOSE
     Route: 065
  3. ACETAMINOPHEN. [Suspect]
     Active Substance: ACETAMINOPHEN
     Indication: TOOTHACHE
     Route: 065
  4. MAGNESIUM SULFATE. [Interacting]
     Active Substance: MAGNESIUM SULFATE
     Indication: PRODUCT USED FOR UNKNOWN INDICATION
     Route: 065
  5. SODIUM BICARBONATE. [Interacting]
     Active Substance: SODIUM BICARBONATE
     Indication: PRODUCT USED FOR UNKNOWN INDICATION
     Route: 065

REACTIONS (13)
  - Premature delivery [Unknown]
  - Vomiting [Unknown]
  - Overdose [Unknown]
  - Eclampsia [Unknown]
  - Palpitations [Unknown]
  - Toxicity to various agents [Unknown]
  - Maternal exposure during pregnancy [Unknown]
  - Hyperkalaemia [Recovering/Resolving]
  - Drug-induced liver injury [Recovered/Resolved]
  - Metabolic acidosis [Recovering/Resolving]
  - Tachycardia [Unknown]
  - Nausea [Unknown]
  - Hepatic steatosis [Unknown]
